FAERS Safety Report 7273110-1 (Version None)
Quarter: 2010Q4

REPORT INFORMATION
  Report Type: 
  Country: None (occurrence: None)
  Receive Date: 20101201
  Receipt Date: 20100525
  Transmission Date: 20110411
  Serious: Yes (Hospitalization)
  Sender: FDA-Public Use
  Company Number: 309123

PATIENT
  Age: 12 Year
  Sex: Female
  Weight: 24.9 kg

DRUGS (2)
  1. NOVOLOG [Suspect]
     Indication: TYPE 1 DIABETES MELLITUS
     Dosage: SUBCUTAN.-PUMP, SUBCUTAN.-PUMP
     Route: 058
     Dates: start: 20080901, end: 20100511
  2. NOVOLOG [Suspect]
     Indication: TYPE 1 DIABETES MELLITUS
     Dosage: SUBCUTAN.-PUMP, SUBCUTAN.-PUMP
     Route: 058
     Dates: start: 20100511

REACTIONS (1)
  - DIABETIC KETOACIDOSIS [None]
